FAERS Safety Report 9547601 (Version 1)
Quarter: 2013Q3

REPORT INFORMATION
  Report Type: Spontaneous
  Country: US (occurrence: None)
  Receive Date: 20130923
  Receipt Date: 20130923
  Transmission Date: 20140515
  Serious: No
  Sender: FDA-Public Use
  Company Number: None

PATIENT
  Age: 24 Year
  Sex: Female

DRUGS (2)
  1. VENLAFAXINE [Suspect]
     Indication: AFFECTIVE DISORDER
     Dates: start: 20130911
  2. VENLAFAXINE [Suspect]
     Indication: ANXIETY DISORDER
     Dates: start: 20130911

REACTIONS (2)
  - Anger [None]
  - Aggression [None]
